FAERS Safety Report 4364778-8 (Version None)
Quarter: 2004Q2

REPORT INFORMATION
  Report Type: 
  Country: None (occurrence: None)
  Receive Date: 20040521
  Receipt Date: 20040514
  Transmission Date: 20050107
  Serious: Yes (Hospitalization)
  Sender: FDA-Public Use
  Company Number: 2004PK00869

PATIENT
  Age: 72 Year
  Sex: Male
  Weight: 89 kg

DRUGS (6)
  1. METOPROLOL SUCCINATE [Suspect]
     Indication: HYPERTENSION
     Dosage: 47.5 MG BID PO
     Route: 048
     Dates: start: 20020101, end: 20031118
  2. DIGITOXIN TAB [Suspect]
     Indication: ARRHYTHMIA
     Dosage: 0.07 MG QD PO
     Route: 048
     Dates: start: 20010101
  3. ACTRAPID HUMAN [Concomitant]
  4. PENTALONG [Concomitant]
  5. PROTAPHAN [Concomitant]
  6. TOREM COR [Concomitant]

REACTIONS (5)
  - ASTHENIA [None]
  - BRADYCARDIA [None]
  - DIZZINESS [None]
  - DRUG INTERACTION [None]
  - NAUSEA [None]
